FAERS Safety Report 23762306 (Version 1)
Quarter: 2024Q2

REPORT INFORMATION
  Report Type: Spontaneous
  Country: US (occurrence: None)
  Receive Date: 20240418
  Receipt Date: 20240418
  Transmission Date: 20240716
  Serious: Yes (Hospitalization)
  Sender: FDA-Public Use
  Company Number: None

PATIENT
  Sex: Female

DRUGS (2)
  1. TASIGNA [Suspect]
     Active Substance: NILOTINIB
     Indication: Chronic myeloid leukaemia
     Dosage: 400 MG TWICE A DAY ORAL
     Route: 048
     Dates: start: 20240131
  2. TASIGNA [Suspect]
     Active Substance: NILOTINIB
     Indication: Philadelphia chromosome positive

REACTIONS (3)
  - Seizure [None]
  - Headache [None]
  - Nervous system disorder [None]
